FAERS Safety Report 12253809 (Version 1)
Quarter: 2016Q2

REPORT INFORMATION
  Report Type: Report from Study
  Country: ES (occurrence: ES)
  Receive Date: 20160411
  Receipt Date: 20160411
  Transmission Date: 20160815
  Serious: Yes (Hospitalization)
  Sender: FDA-Public Use
  Company Number: ES-CELGENE-144-50794-14044236

PATIENT
  Age: 75 Year
  Sex: Male
  Weight: 72 kg

DRUGS (5)
  1. ERYTHROPOIETIN [Suspect]
     Active Substance: ERYTHROPOIETIN
     Indication: MYELODYSPLASTIC SYNDROME
     Dosage: 8571.4286
     Route: 058
  2. VIDAZA [Suspect]
     Active Substance: AZACITIDINE
     Indication: MYELODYSPLASTIC SYNDROME
     Route: 058
  3. ENALAPRIL [Concomitant]
     Active Substance: ENALAPRIL
     Indication: HYPERTENSION
     Dosage: 10 MILLIGRAM
     Route: 048
     Dates: start: 20090811, end: 2013
  4. SIMVASTATIN. [Concomitant]
     Active Substance: SIMVASTATIN
     Indication: HYPERCHOLESTEROLAEMIA
     Dosage: 20 MILLIGRAM
     Route: 048
     Dates: start: 20090811, end: 2013
  5. EXJADE [Concomitant]
     Active Substance: DEFERASIROX
     Indication: HAEMOCHROMATOSIS
     Dosage: 1000 MILLIGRAM
     Route: 048
     Dates: start: 20131115, end: 20140115

REACTIONS (4)
  - Hypoacusis [Recovered/Resolved with Sequelae]
  - Presyncope [Recovered/Resolved]
  - Anal haemorrhage [Recovered/Resolved with Sequelae]
  - Anal abscess [Recovered/Resolved]

NARRATIVE: CASE EVENT DATE: 20131118
